FAERS Safety Report 25590326 (Version 1)
Quarter: 2025Q3

REPORT INFORMATION
  Report Type: Report from Study
  Country: US (occurrence: US)
  Receive Date: 20250722
  Receipt Date: 20250722
  Transmission Date: 20251021
  Serious: Yes (Disabling, Other)
  Sender: COLLEGIUM PHARMACEUTICAL
  Company Number: US-COLLEGIUM PHARMACEUTICAL, INC.-20250702363

PATIENT

DRUGS (1)
  1. BELBUCA [Suspect]
     Active Substance: BUPRENORPHINE HYDROCHLORIDE
     Indication: Product used for unknown indication
     Route: 002
     Dates: start: 2019

REACTIONS (1)
  - Disability [Not Recovered/Not Resolved]
